FAERS Safety Report 9896891 (Version 2)
Quarter: 2014Q1

REPORT INFORMATION
  Report Type: Spontaneous
  Country: DE (occurrence: DE)
  Receive Date: 20140214
  Receipt Date: 20140311
  Transmission Date: 20141002
  Serious: Yes (Hospitalization, Other)
  Sender: FDA-Public Use
  Company Number: DE-AMGEN-DEUSP2014009543

PATIENT
  Age: 76 Year
  Sex: Male
  Weight: 78 kg

DRUGS (14)
  1. XGEVA [Suspect]
     Indication: RENAL CELL CARCINOMA
     Dosage: 120 MG, QMO
     Route: 058
     Dates: start: 20130213
  2. XGEVA [Suspect]
     Indication: METASTASES TO BONE
  3. LERCANIDIPINE [Concomitant]
     Indication: CORONARY ARTERY DISEASE
     Dosage: 10 MG, QD
     Route: 048
  4. LERCANIDIPINE [Concomitant]
     Indication: HYPERTENSION
  5. METOPROLOL [Concomitant]
     Indication: CORONARY ARTERY DISEASE
     Dosage: 50 MG, QD
     Route: 048
  6. METOPROLOL [Concomitant]
     Indication: HYPERTENSION
  7. ENALAPRIL [Concomitant]
     Indication: CORONARY ARTERY DISEASE
     Dosage: 5 MG, QD
     Route: 048
  8. ENALAPRIL [Concomitant]
     Indication: HYPERTENSION
  9. TORASEMID [Concomitant]
     Indication: CORONARY ARTERY DISEASE
     Dosage: 10 MG, QD
     Route: 048
  10. TORASEMID [Concomitant]
     Indication: HYPERTENSION
  11. FENTANYL [Concomitant]
     Dosage: 75 MUG, UNK
     Dates: start: 201306
  12. AFINITOR [Concomitant]
     Dosage: 10 MG, UNK
     Route: 048
     Dates: start: 20130807
  13. ASS [Concomitant]
  14. INLYTA [Concomitant]
     Dosage: UNK
     Dates: start: 201302, end: 201306

REACTIONS (1)
  - Osteonecrosis of jaw [Recovering/Resolving]
